FAERS Safety Report 15165266 (Version 1)
Quarter: 2018Q3

REPORT INFORMATION
  Report Type: Spontaneous
  Country: US (occurrence: US)
  Receive Date: 20180719
  Receipt Date: 20180719
  Transmission Date: 20181010
  Serious: No
  Sender: FDA-Public Use
  Company Number: US-ASTRAZENECA-2018SE81133

PATIENT
  Sex: Female

DRUGS (1)
  1. FASENRA [Suspect]
     Active Substance: BENRALIZUMAB
     Route: 048

REACTIONS (11)
  - Urticaria [Unknown]
  - Syncope [Unknown]
  - Neuralgia [Unknown]
  - Mast cell activation syndrome [Unknown]
  - Migraine [Unknown]
  - Seborrhoea [Unknown]
  - Tremor [Unknown]
  - Hypermobility syndrome [Unknown]
  - Asthma [Unknown]
  - Dizziness [Unknown]
  - Postural orthostatic tachycardia syndrome [Unknown]
